APPROVED DRUG PRODUCT: SYMLIN
Active Ingredient: PRAMLINTIDE ACETATE
Strength: EQ 3MG BASE/5ML (EQ 600MCG BASE/ML)
Dosage Form/Route: INJECTABLE;SUBCUTANEOUS
Application: N021332 | Product #001
Applicant: ASTRAZENECA AB
Approved: Mar 16, 2005 | RLD: No | RS: No | Type: DISCN